FAERS Safety Report 9204417 (Version 2)
Quarter: 2013Q2

REPORT INFORMATION
  Report Type: Spontaneous
  Country: IT (occurrence: IT)
  Receive Date: 20130402
  Receipt Date: 20130510
  Transmission Date: 20140414
  Serious: Yes (Hospitalization, Other)
  Sender: FDA-Public Use
  Company Number: IT-PFIZER INC-2013095562

PATIENT
  Age: 80 Year
  Sex: Male

DRUGS (6)
  1. CARDURA [Suspect]
     Indication: ESSENTIAL HYPERTENSION
     Dosage: 4 MG, 1X/DAY
     Route: 048
     Dates: start: 20130317, end: 20130317
  2. ALTIAZEM [Concomitant]
     Dosage: 180 MG, UNK
     Route: 048
     Dates: start: 20130312
  3. NORVASC [Concomitant]
     Dosage: UNK
     Route: 048
     Dates: start: 20130312
  4. XANAX [Concomitant]
     Dosage: UNK
     Route: 048
  5. LYRICA [Concomitant]
     Dosage: UNK
     Route: 048
  6. LORTAAN [Concomitant]
     Dosage: UNK
     Route: 048

REACTIONS (4)
  - Electrocardiogram repolarisation abnormality [Unknown]
  - Atrioventricular block first degree [Unknown]
  - Extrasystoles [Unknown]
  - Syncope [Recovering/Resolving]
